FAERS Safety Report 20917689 (Version 2)
Quarter: 2022Q3

REPORT INFORMATION
  Report Type: Spontaneous
  Country: FR (occurrence: FR)
  Receive Date: 20220606
  Receipt Date: 20220823
  Transmission Date: 20221026
  Serious: Yes (Hospitalization)
  Sender: FDA-Public Use
  Company Number: FR-NOVOPROD-922299

PATIENT
  Age: 48 Year
  Sex: Male
  Weight: 73 kg

DRUGS (3)
  1. FIASP [Suspect]
     Active Substance: INSULIN ASPART
     Indication: Product used for unknown indication
     Dosage: 3 IU
     Route: 058
  2. FIASP [Suspect]
     Active Substance: INSULIN ASPART
     Dosage: UNK
     Route: 058
  3. FIASP [Suspect]
     Active Substance: INSULIN ASPART
     Dosage: 28 IU, QD(6 U ON MORNING, 11 U ON MIDDAY AND 11 U ON NIGHT)
     Route: 058

REACTIONS (3)
  - Hypoglycaemia [Recovering/Resolving]
  - Device delivery system issue [Unknown]
  - Incorrect dose administered by device [Unknown]
